FAERS Safety Report 16457963 (Version 2)
Quarter: 2019Q3

REPORT INFORMATION
  Report Type: Spontaneous
  Country: US (occurrence: US)
  Receive Date: 20190620
  Receipt Date: 20190808
  Transmission Date: 20191004
  Serious: No
  Sender: FDA-Public Use
  Company Number: US-PFIZER INC-2019258803

PATIENT
  Age: 79 Year
  Sex: Male
  Weight: 94.35 kg

DRUGS (1)
  1. LYRICA [Suspect]
     Active Substance: PREGABALIN
     Indication: NEUROPATHY PERIPHERAL
     Dosage: 200 MG, THREE TIMES A DAY
     Route: 048

REACTIONS (2)
  - Hypoaesthesia [Unknown]
  - Nasopharyngitis [Unknown]
